FAERS Safety Report 22336439 (Version 2)
Quarter: 2023Q4

REPORT INFORMATION
  Report Type: Report from Study
  Country: BR (occurrence: BR)
  Receive Date: 20230518
  Receipt Date: 20231011
  Transmission Date: 20240110
  Serious: Yes (Hospitalization, Disabling, Other)
  Sender: FDA-Public Use
  Company Number: BR-CELLTRION INC.-2023BR010187

PATIENT

DRUGS (1)
  1. INFLIXIMAB [Suspect]
     Active Substance: INFLIXIMAB
     Indication: Rheumatoid arthritis
     Dosage: UNK
     Route: 042
     Dates: start: 20220926

REACTIONS (10)
  - Angiopathy [Unknown]
  - Rheumatoid arthritis [Recovered/Resolved]
  - Gait inability [Recovered/Resolved]
  - Haemorrhage [Unknown]
  - Limb injury [Unknown]
  - Gastrointestinal disorder [Recovered/Resolved]
  - Viral infection [Recovered/Resolved]
  - Oropharyngeal pain [Recovered/Resolved]
  - Asthenia [Unknown]
  - Intentional dose omission [Unknown]
